FAERS Safety Report 5877619-4 (Version None)
Quarter: 2008Q3

REPORT INFORMATION
  Report Type: 
  Country: None (occurrence: None)
  Receive Date: 20080911
  Receipt Date: 20080902
  Transmission Date: 20090109
  Serious: Yes (Hospitalization, Other)
  Sender: FDA-Public Use
  Company Number: DE-BAYER-DE-2007-032103

PATIENT
  Age: 36 Year
  Sex: Female
  Weight: 89 kg

DRUGS (1)
  1. MIRENA [Suspect]
     Indication: CONTRACEPTION
     Route: 015
     Dates: start: 20020325, end: 20080119

REACTIONS (6)
  - GENITAL HAEMORRHAGE [None]
  - GESTATIONAL DIABETES [None]
  - PLACENTAL DISORDER [None]
  - POLYHYDRAMNIOS [None]
  - PREGNANCY WITH CONTRACEPTIVE DEVICE [None]
  - PREMATURE LABOUR [None]
